FAERS Safety Report 4339747-4 (Version None)
Quarter: 2004Q2

REPORT INFORMATION
  Report Type: 
  Country: None (occurrence: None)
  Receive Date: 20040415
  Receipt Date: 20040415
  Transmission Date: 20050107
  Serious: Yes (Hospitalization)
  Sender: FDA-Public Use
  Company Number: None

PATIENT
  Age: 76 Year
  Sex: Male

DRUGS (1)
  1. ARSENIC TRIOXIDE CTI CELL THERAPEUTICS [Suspect]
     Indication: MYELODYSPLASTIC SYNDROME
     Dosage: 0.3MG/KG DAILY FOR INTRAVENOUS
     Route: 042
     Dates: start: 20040405, end: 20040407

REACTIONS (9)
  - CONFUSIONAL STATE [None]
  - DIFFICULTY IN WALKING [None]
  - DYSARTHRIA [None]
  - DYSKINESIA [None]
  - EXTRAPYRAMIDAL DISORDER [None]
  - FALL [None]
  - FIBULA FRACTURE [None]
  - METAL POISONING [None]
  - SOMNOLENCE [None]
